FAERS Safety Report 4508927-7 (Version None)
Quarter: 2004Q4

REPORT INFORMATION
  Report Type: 
  Country: None (occurrence: None)
  Receive Date: 20041123
  Receipt Date: 20041018
  Transmission Date: 20050328
  Serious: Yes (Death)
  Sender: FDA-Public Use
  Company Number: WAES 0408USA02143

PATIENT
  Age: 84 Year
  Sex: Male

DRUGS (9)
  1. ROSIGLITAZONE MALEATE [Suspect]
     Route: 048
     Dates: start: 20000101
  2. METFORMIN HCL [Suspect]
     Indication: DIABETES MELLITUS NON-INSULIN-DEPENDENT
     Dosage: 1000MG PER DAY
     Route: 048
  3. LISINOPRIL [Suspect]
     Route: 048
  4. ASPIRIN [Concomitant]
     Route: 065
  5. DOTHIEPIN HYDROCHLORIDE [Concomitant]
     Route: 065
  6. FLUOXETINE [Concomitant]
     Route: 065
  7. GLICLAZIDE [Concomitant]
     Dosage: 160MG PER DAY
     Route: 065
  8. LEVOTHYROXINE SODIUM [Concomitant]
     Route: 065
  9. RABEPRAZOLE SODIUM [Concomitant]
     Route: 065

REACTIONS (17)
  - ALANINE AMINOTRANSFERASE INCREASED [None]
  - BLOOD CREATININE INCREASED [None]
  - BUNDLE BRANCH BLOCK [None]
  - BUNDLE BRANCH BLOCK RIGHT [None]
  - CARDIAC FAILURE CONGESTIVE [None]
  - COAGULOPATHY [None]
  - CREPITATIONS [None]
  - DYSPNOEA [None]
  - HEPATOCELLULAR DAMAGE [None]
  - HEPATOMEGALY [None]
  - ISCHAEMIC HEPATITIS [None]
  - LACTIC ACIDOSIS [None]
  - LOWER RESPIRATORY TRACT INFECTION [None]
  - MALAISE [None]
  - PLEURAL EFFUSION [None]
  - RENAL IMPAIRMENT [None]
  - TACHYPNOEA [None]
